FAERS Safety Report 10273044 (Version 1)
Quarter: 2014Q2

REPORT INFORMATION
  Report Type: Spontaneous
  Country: ES (occurrence: None)
  Receive Date: 20140630
  Receipt Date: 20140630
  Transmission Date: 20141212
  Serious: Yes (Other)
  Sender: FDA-Public Use
  Company Number: 7300539

PATIENT
  Sex: Female

DRUGS (2)
  1. LEVOTHYROXINE (LEVOTHYROXINE) (LEVOTHYROXINE) [Suspect]
     Indication: HYPOTHYROIDISM
     Route: 048
  2. METFORMIN (METFORMIN) (METFORMIN) [Suspect]
     Indication: INSULIN RESISTANCE

REACTIONS (2)
  - Abortion spontaneous [None]
  - Maternal drugs affecting foetus [None]
